FAERS Safety Report 8911237 (Version 1)
Quarter: 2012Q4

REPORT INFORMATION
  Report Type: 
  Country: US (occurrence: US)
  Receive Date: 20121116
  Receipt Date: 20121116
  Transmission Date: 20130627
  Serious: No
  Sender: FDA-Public Use
  Company Number: US-GLAXOSMITHKLINE-A0992934A

PATIENT
  Age: 56 Year
  Sex: Female
  Weight: 90.9 kg

DRUGS (10)
  1. VOTRIENT [Suspect]
     Indication: PRODUCT USED FOR UNKNOWN INDICATION
     Dosage: 200MG Per day
     Route: 048
  2. LIPITOR [Concomitant]
     Route: 065
  3. SYNTHROID [Concomitant]
     Route: 065
  4. CELEXA [Concomitant]
     Route: 065
  5. GLYBURIDE [Concomitant]
     Route: 065
  6. AMILORIDE [Concomitant]
     Route: 065
  7. ASPIRIN [Concomitant]
     Route: 065
  8. GABAPENTIN [Concomitant]
     Route: 065
  9. AMOXICILLIN [Concomitant]
     Route: 065
  10. AMLODIPINE [Concomitant]
     Route: 065

REACTIONS (1)
  - Diarrhoea [Unknown]
